FAERS Safety Report 6771981-6 (Version None)
Quarter: 2010Q2

REPORT INFORMATION
  Report Type: 
  Country: None (occurrence: None)
  Receive Date: 20100616
  Receipt Date: 20100303
  Transmission Date: 20101027
  Serious: No
  Sender: FDA-Public Use
  Company Number: US-ASTRAZENECA-2010SE02163

PATIENT
  Age: 81 Year
  Sex: Female

DRUGS (5)
  1. RHINOCORT [Suspect]
     Indication: POSTNASAL DRIP
     Route: 045
     Dates: start: 20100114
  2. OTC [Suspect]
     Route: 065
  3. PREVALITE [Concomitant]
  4. VITAMINS [Concomitant]
  5. MINERAL TAB [Concomitant]

REACTIONS (2)
  - DRY THROAT [None]
  - NASOPHARYNGITIS [None]
